FAERS Safety Report 7922024-X (Version None)
Quarter: 2011Q4

REPORT INFORMATION
  Report Type: 
  Country: None (occurrence: None)
  Receive Date: 20111117
  Receipt Date: 20111109
  Transmission Date: 20120403
  Serious: Yes (Hospitalization)
  Sender: FDA-Public Use
  Company Number: KR-BAXTER-2011BH032132

PATIENT
  Age: 20 Year
  Sex: Female
  Weight: 65 kg

DRUGS (15)
  1. BENZBROMARONE [Concomitant]
     Indication: URINARY TRACT DISORDER
     Route: 048
     Dates: start: 20091214
  2. SODIUM BICARBONATE [Concomitant]
     Indication: URINARY TRACT DISORDER
     Route: 048
     Dates: start: 20100312
  3. DIANEAL [Suspect]
     Indication: RENAL FAILURE CHRONIC
     Route: 033
     Dates: start: 20111017
  4. DIANEAL [Suspect]
     Indication: PERITONEAL DIALYSIS
     Route: 033
     Dates: start: 20111017
  5. DIANEAL [Suspect]
     Route: 033
     Dates: start: 20110506, end: 20110928
  6. PHYSIOSOL IN PLASTIC CONTAINER [Concomitant]
     Indication: PERITONEAL DIALYSIS
     Route: 033
     Dates: start: 20110331, end: 20110505
  7. CRESTOR [Concomitant]
     Indication: HYPERLIPIDAEMIA
     Route: 048
     Dates: start: 20110921
  8. ENALAPRIL MALEATE [Concomitant]
     Indication: HYPERTENSION
     Route: 048
     Dates: start: 20080604
  9. FOSRENOL [Concomitant]
     Indication: HYPERPHOSPHATAEMIA
     Route: 048
     Dates: start: 20110525
  10. AMLODIPINE [Concomitant]
     Indication: HYPERTENSION
     Route: 048
     Dates: start: 20100524
  11. FOLIC ACID [Concomitant]
     Indication: VITAMIN SUPPLEMENTATION
     Route: 048
     Dates: start: 20110516
  12. VITAMIN B COMPLEX WITH C [Concomitant]
     Indication: VITAMIN SUPPLEMENTATION
     Route: 048
     Dates: start: 20110525
  13. DIANEAL [Suspect]
     Route: 033
     Dates: start: 20110506, end: 20110928
  14. NESPO [Concomitant]
     Indication: ANAEMIA
     Route: 058
     Dates: start: 20111002
  15. DOMPERIDONE MALEATE [Concomitant]
     Indication: GASTROINTESTINAL MOTILITY DISORDER
     Route: 048
     Dates: start: 20110307

REACTIONS (1)
  - PERITONEAL DIALYSIS COMPLICATION [None]
